FAERS Safety Report 14239112 (Version 1)
Quarter: 2017Q4

REPORT INFORMATION
  Report Type: Spontaneous
  Country: US (occurrence: US)
  Receive Date: 20171127
  Receipt Date: 20171127
  Transmission Date: 20180321
  Serious: Yes (Life-Threatening, Hospitalization, Disabling, Other)
  Sender: FDA-Public Use
  Company Number: None

PATIENT
  Age: 20 Year
  Sex: Female
  Weight: 70.2 kg

DRUGS (5)
  1. VITAMIN D3 [Concomitant]
     Active Substance: CHOLECALCIFEROL
  2. LAPROZINE [Concomitant]
  3. VITAMIN B12 [Concomitant]
     Active Substance: CYANOCOBALAMIN
  4. ISOVUE 370 [Suspect]
     Active Substance: IOPAMIDOL
     Indication: SCAN WITH CONTRAST
     Route: 042
     Dates: start: 20171113, end: 20171113
  5. ISOVUE 370 [Suspect]
     Active Substance: IOPAMIDOL
     Indication: GASTROINTESTINAL SCAN
     Route: 042
     Dates: start: 20171113, end: 20171113

REACTIONS (2)
  - Burning sensation [None]
  - Dysphagia [None]

NARRATIVE: CASE EVENT DATE: 20171113
